FAERS Safety Report 8265523-6 (Version None)
Quarter: 2012Q2

REPORT INFORMATION
  Report Type: 
  Country: None (occurrence: None)
  Receive Date: 20120403
  Receipt Date: 20120319
  Transmission Date: 20120825
  Serious: Yes (Congenital Anomaly)
  Sender: FDA-Public Use
  Company Number: E2B_00000190

PATIENT
  Sex: Male
  Weight: 3.335 kg

DRUGS (2)
  1. LAMOTRIGINE [Suspect]
     Indication: EPILEPSY
     Dosage: 350 [MG/D ] / GW 0-13: 100 MG/D
     Dates: start: 20090410, end: 20100106
  2. FOLIC ACID (FOLSAN) [Concomitant]

REACTIONS (4)
  - VENTRICULAR SEPTAL DEFECT [None]
  - MATERNAL DRUGS AFFECTING FOETUS [None]
  - CAESAREAN SECTION [None]
  - ATRIAL SEPTAL DEFECT [None]
